FAERS Safety Report 9408688 (Version 3)
Quarter: 2013Q3

REPORT INFORMATION
  Report Type: Report from Study
  Country: JP (occurrence: JP)
  Receive Date: 20130712
  Receipt Date: 20130930
  Transmission Date: 20140515
  Serious: Yes (Death, Life-Threatening, Hospitalization, Other)
  Sender: FDA-Public Use
  Company Number: JP-PFIZER INC-2013201553

PATIENT
  Age: 39 Year
  Sex: Male

DRUGS (14)
  1. ZYVOX [Suspect]
     Indication: CHRONIC MYELOID LEUKAEMIA
     Dosage: 1200 MG, 1X/DAY
     Route: 042
     Dates: start: 20091119, end: 20091122
  2. VANCOMYCIN [Suspect]
     Indication: CHRONIC MYELOID LEUKAEMIA
     Dosage: 1 G, 1X/DAY
     Route: 042
     Dates: start: 20091108, end: 20091118
  3. SPRYCEL [Suspect]
     Indication: CHRONIC MYELOID LEUKAEMIA
     Dosage: 70 MG, 1X/DAY
     Route: 048
     Dates: start: 20091007, end: 20091019
  4. SPRYCEL [Suspect]
     Dosage: 100 MG, 1X/DAY
     Route: 048
     Dates: start: 20091020, end: 20091123
  5. SPRYCEL [Suspect]
     Dosage: 50 MG, 1X/DAY
     Route: 048
     Dates: start: 20100826, end: 20101201
  6. SPRYCEL [Suspect]
     Dosage: 70 MG, 1X/DAY
     Route: 048
     Dates: start: 20110112, end: 20110118
  7. SPRYCEL [Suspect]
     Dosage: 70 MG, 1X/DAY
     Route: 048
     Dates: start: 20110209, end: 20110210
  8. SPRYCEL [Suspect]
     Dosage: 70 MG, 2X/DAY
     Route: 048
     Dates: start: 20110211, end: 20110224
  9. SPRYCEL [Suspect]
     Dosage: 70 MG, 2X/DAY
     Route: 048
     Dates: start: 20110302, end: 20110315
  10. SPRYCEL [Suspect]
     Dosage: 100 MG, 1X/DAY
     Route: 048
     Dates: start: 20110601, end: 20110701
  11. SPRYCEL [Suspect]
     Dosage: 70 MG, 1X/DAY
     Route: 048
     Dates: start: 20110716, end: 20110718
  12. SPRYCEL [Suspect]
     Dosage: 50 MG, 1X/DAY
     Route: 048
     Dates: start: 20110719, end: 20110719
  13. SPRYCEL [Suspect]
     Dosage: 70 MG, 1X/DAY
     Route: 048
     Dates: start: 20110720, end: 20110722
  14. SPRYCEL [Suspect]
     Dosage: 70 MG, 2X/DAY
     Route: 048
     Dates: start: 20110723, end: 20110805

REACTIONS (7)
  - Malignant neoplasm progression [Fatal]
  - Renal failure acute [Recovered/Resolved]
  - Platelet count decreased [Recovered/Resolved]
  - Febrile neutropenia [Recovered/Resolved]
  - Face oedema [Recovered/Resolved]
  - Pleural effusion [Unknown]
  - Generalised oedema [Unknown]
